FAERS Safety Report 23889658 (Version 2)
Quarter: 2024Q2

REPORT INFORMATION
  Report Type: Report from Study
  Country: US (occurrence: US)
  Receive Date: 20240523
  Receipt Date: 20240621
  Transmission Date: 20240715
  Serious: No
  Sender: FDA-Public Use
  Company Number: US-BIOVITRUM-2024-US-006412

PATIENT
  Age: 40 Year
  Sex: Female

DRUGS (1)
  1. KINERET [Suspect]
     Active Substance: ANAKINRA
     Indication: Autoinflammatory disease
     Dosage: 100 MG DAILY
     Route: 058
     Dates: start: 20240426

REACTIONS (6)
  - Off label use [Not Recovered/Not Resolved]
  - Injection site pain [Unknown]
  - Injection site urticaria [Recovering/Resolving]
  - Injection site reaction [Unknown]
  - Injection site induration [Unknown]
  - Nausea [Recovered/Resolved]

NARRATIVE: CASE EVENT DATE: 20240426
